FAERS Safety Report 16821352 (Version 1)
Quarter: 2019Q3

REPORT INFORMATION
  Report Type: Report from Study
  Country: BR (occurrence: BR)
  Receive Date: 20190918
  Receipt Date: 20190918
  Transmission Date: 20191005
  Serious: Yes (Other)
  Sender: FDA-Public Use
  Company Number: PHHY2019BR008447

PATIENT
  Sex: Female
  Weight: 79 kg

DRUGS (1)
  1. GILENYA [Suspect]
     Active Substance: FINGOLIMOD HYDROCHLORIDE
     Indication: MULTIPLE SCLEROSIS
     Dosage: 0.5 MG, QD
     Route: 048
     Dates: start: 201808, end: 201907

REACTIONS (5)
  - Malaise [Unknown]
  - Drug ineffective [Unknown]
  - Liver disorder [Unknown]
  - Intervertebral disc protrusion [Unknown]
  - Visual impairment [Not Recovered/Not Resolved]
